FAERS Safety Report 8235019-6 (Version None)
Quarter: 2012Q1

REPORT INFORMATION
  Report Type: 
  Country: None (occurrence: None)
  Receive Date: 20120326
  Receipt Date: 20120320
  Transmission Date: 20120608
  Serious: Yes (Hospitalization, Congenital Anomaly)
  Sender: FDA-Public Use
  Company Number: US-GLAXOSMITHKLINE-A0930797A

PATIENT
  Sex: Female
  Weight: 3.2 kg

DRUGS (1)
  1. PAXIL CR [Suspect]
     Indication: DEPRESSION
     Dosage: 25MG PER DAY
     Route: 064
     Dates: start: 20040101

REACTIONS (7)
  - FOETAL EXPOSURE DURING PREGNANCY [None]
  - DYSPNOEA [None]
  - GASTROINTESTINAL DISORDER [None]
  - CLEFT LIP AND PALATE [None]
  - GASTROOESOPHAGEAL REFLUX DISEASE [None]
  - CONGENITAL ORAL MALFORMATION [None]
  - SPEECH DISORDER [None]
